FAERS Safety Report 9537300 (Version 2)
Quarter: 2013Q4

REPORT INFORMATION
  Report Type: Report from Study
  Country: MX (occurrence: MX)
  Receive Date: 20130919
  Receipt Date: 20131028
  Transmission Date: 20140711
  Serious: Yes (Other)
  Sender: FDA-Public Use
  Company Number: PHHY2013MX103693

PATIENT
  Age: 73 Year
  Sex: Female

DRUGS (3)
  1. DIOVAN [Suspect]
     Indication: HYPERTENSION
     Dosage: 1 DF, (80 MG) DAILY
     Route: 048
  2. DIOVAN [Suspect]
     Dosage: 2 DF, (80 MG) DAILY
     Route: 048
  3. TOFRANIL [Suspect]
     Indication: DEPRESSION
     Dosage: 0.5 DF, DAILY
     Dates: start: 1970

REACTIONS (7)
  - Drug-induced liver injury [Not Recovered/Not Resolved]
  - Cataract [Not Recovered/Not Resolved]
  - Diabetes mellitus [Not Recovered/Not Resolved]
  - Malaise [Not Recovered/Not Resolved]
  - Gastric dilatation [Unknown]
  - Inadequate lubrication [Unknown]
  - Blood pressure increased [Not Recovered/Not Resolved]
